FAERS Safety Report 9257109 (Version 1)
Quarter: 2013Q2

REPORT INFORMATION
  Report Type: Spontaneous
  Country: NE (occurrence: None)
  Receive Date: 20130423
  Receipt Date: 20130423
  Transmission Date: 20140414
  Serious: Yes (Hospitalization)
  Sender: FDA-Public Use
  Company Number: AUR-APL-2013-03210

PATIENT
  Age: 55 Year
  Sex: Male
  Weight: 86 kg

DRUGS (5)
  1. PANTOPRAZOLE [Suspect]
     Indication: GASTRIC DISORDER
     Route: 048
     Dates: start: 2009, end: 20130307
  2. VENLAFAXINE (VENLAFAXINE) [Concomitant]
  3. CARBASALTE CALCIUM (CARBASALATE CALCIUM) [Concomitant]
  4. DILTIAZEPAM [Concomitant]
  5. LIPITOR (ATORVASTATIN) [Concomitant]

REACTIONS (4)
  - Hypomagnesaemia [None]
  - Tremor [None]
  - Nervousness [None]
  - Malaise [None]
